FAERS Safety Report 14783837 (Version 2)
Quarter: 2019Q2

REPORT INFORMATION
  Report Type: Spontaneous
  Country: DE (occurrence: DE)
  Receive Date: 20180420
  Receipt Date: 20190425
  Transmission Date: 20190711
  Serious: Yes (Death, Hospitalization)
  Sender: FDA-Public Use
  Company Number: PHHY2018DE068365

PATIENT
  Age: 64 Year
  Sex: Male
  Weight: 135 kg

DRUGS (1)
  1. DOCETAXEL. [Suspect]
     Active Substance: DOCETAXEL
     Indication: BREAST CANCER MALE
     Dosage: 60 MG, QW
     Route: 042
     Dates: start: 20161018

REACTIONS (2)
  - Off label use [Fatal]
  - General physical condition abnormal [Fatal]

NARRATIVE: CASE EVENT DATE: 20161018
